FAERS Safety Report 5334286-6 (Version None)
Quarter: 2007Q2

REPORT INFORMATION
  Report Type: 
  Country: None (occurrence: None)
  Receive Date: 20070523
  Receipt Date: 20070523
  Transmission Date: 20071010
  Serious: Yes (Death)
  Sender: FDA-Public Use
  Company Number: None

PATIENT
  Age: 51 Year
  Sex: Female
  Weight: 65.7716 kg

DRUGS (5)
  1. ARAVA [Suspect]
     Indication: RHEUMATOID ARTHRITIS
     Dosage: 20MG ONCE DAILY PO 6-8 MONTHS
     Route: 048
  2. ORUVAIL [Suspect]
     Indication: RHEUMATOID ARTHRITIS
     Dosage: 150MG TWICE A DAY PO 6-8 MONTHS
     Route: 048
  3. METOPROLOL SUCCINATE [Concomitant]
  4. PROPO-N/APAP [Concomitant]
  5. TETRACYCLINE [Concomitant]

REACTIONS (4)
  - ARTERIOSCLEROSIS [None]
  - FALL [None]
  - PYREXIA [None]
  - VOMITING [None]
